FAERS Safety Report 4936920-9 (Version None)
Quarter: 2006Q1

REPORT INFORMATION
  Report Type: 
  Country: None (occurrence: None)
  Receive Date: 20060307
  Receipt Date: 20050414
  Transmission Date: 20060701
  Serious: Yes (Other)
  Sender: FDA-Public Use
  Company Number: US-MERCK-0504USA02945

PATIENT
  Age: 46 Year
  Sex: Female

DRUGS (2)
  1. VIOXX [Suspect]
     Route: 048
     Dates: start: 19990101, end: 20030701
  2. VICODIN [Concomitant]
     Route: 065
     Dates: start: 19990101

REACTIONS (6)
  - ASTHMA [None]
  - BACK INJURY [None]
  - CARDIOMEGALY [None]
  - CEREBROVASCULAR ACCIDENT [None]
  - HERNIA [None]
  - MYOCARDIAL INFARCTION [None]
